FAERS Safety Report 4641606-4 (Version None)
Quarter: 2005Q2

REPORT INFORMATION
  Report Type: 
  Country: None (occurrence: None)
  Receive Date: 20050420
  Receipt Date: 20050414
  Transmission Date: 20051028
  Serious: Yes (Hospitalization)
  Sender: FDA-Public Use
  Company Number: B0378254A

PATIENT

DRUGS (4)
  1. ALKERAN [Suspect]
     Indication: MULTIPLE MYELOMA
     Dosage: 60 MG/M2/SINGLE DOSE; INTRAVENOUS
     Route: 042
  2. GRANULOCYTE COL.STEM.FACT [Concomitant]
  3. CIPROFLOXACIN [Concomitant]
  4. FLUCONAZOLE [Concomitant]

REACTIONS (4)
  - ACINETOBACTER INFECTION [None]
  - BACTERAEMIA [None]
  - NEUTROPENIA [None]
  - THROMBOCYTOPENIA [None]
